FAERS Safety Report 4947140-6 (Version None)
Quarter: 2006Q1

REPORT INFORMATION
  Report Type: 
  Country: None (occurrence: None)
  Receive Date: 20060314
  Receipt Date: 20060221
  Transmission Date: 20060701
  Serious: Yes (Life-Threatening, Hospitalization)
  Sender: FDA-Public Use
  Company Number: US200602004373

PATIENT
  Age: 76 Year
  Sex: Female

DRUGS (2)
  1. FORTEO [Suspect]
     Dates: start: 20040701
  2. FORTEO [Concomitant]

REACTIONS (6)
  - CARDIAC ARREST [None]
  - LUNG DISORDER [None]
  - LUNG INJURY [None]
  - PHARMACEUTICAL PRODUCT COMPLAINT [None]
  - PULMONARY HAEMORRHAGE [None]
  - RIB FRACTURE [None]
